FAERS Safety Report 16248432 (Version 2)
Quarter: 2019Q3

REPORT INFORMATION
  Report Type: Other
  Country: PL (occurrence: PL)
  Receive Date: 20190429
  Receipt Date: 20190717
  Transmission Date: 20191004
  Serious: Yes (Other)
  Sender: FDA-Public Use
  Company Number: PL-CELLTRION INC.-2019PL020747

PATIENT

DRUGS (3)
  1. METHYLPREDNISOLONE. [Concomitant]
     Active Substance: METHYLPREDNISOLONE
     Indication: NONINFECTIVE ENCEPHALITIS
  2. TOCILIZUMAB. [Suspect]
     Active Substance: TOCILIZUMAB
     Indication: NONINFECTIVE ENCEPHALITIS
     Dosage: 162 MG, EVERY 2 WEEKS
     Route: 058
     Dates: start: 20190320
  3. RITUXIMAB (UNKNOWN) [Suspect]
     Active Substance: RITUXIMAB
     Indication: NONINFECTIVE ENCEPHALITIS
     Dosage: UNK
     Route: 065
     Dates: start: 2018

REACTIONS (7)
  - Product use in unapproved indication [Unknown]
  - Paralysis [Unknown]
  - Malignant atrophic papulosis [Unknown]
  - Off label use [Unknown]
  - Neurogenic bladder [Unknown]
  - Gait inability [Unknown]
  - Intentional product use issue [Unknown]

NARRATIVE: CASE EVENT DATE: 2018
